FAERS Safety Report 6985623-8 (Version None)
Quarter: 2010Q3

REPORT INFORMATION
  Report Type: 
  Country: None (occurrence: None)
  Receive Date: 20100915
  Receipt Date: 20100719
  Transmission Date: 20110219
  Serious: Yes (Death, Other)
  Sender: FDA-Public Use
  Company Number: US-BAXTER-2010BH019310

PATIENT
  Age: 13 Year
  Sex: Female

DRUGS (1)
  1. DIANEAL [Suspect]
     Indication: PERITONEAL DIALYSIS
     Route: 033
     Dates: end: 20100716

REACTIONS (4)
  - CARDIAC FAILURE [None]
  - CARDIO-RESPIRATORY ARREST [None]
  - COMPLICATIONS OF TRANSPLANT SURGERY [None]
  - WITHDRAWAL OF LIFE SUPPORT [None]
